FAERS Safety Report 7966409-4 (Version None)
Quarter: 2011Q4

REPORT INFORMATION
  Report Type: 
  Country: None (occurrence: None)
  Receive Date: 20111208
  Receipt Date: 20111122
  Transmission Date: 20120403
  Serious: Yes (Other)
  Sender: FDA-Public Use
  Company Number: JP-ROCHE-1009219

PATIENT
  Age: 69 Year
  Sex: Male
  Weight: 68 kg

DRUGS (8)
  1. RANIBIZUMAB [Suspect]
     Indication: AGE-RELATED MACULAR DEGENERATION
     Route: 050
     Dates: start: 20101124
  2. CEFMENOXIME HYDROCHLORIDE [Concomitant]
  3. CEFMENOXIME HYDROCHLORIDE [Concomitant]
     Dates: start: 20101101, end: 20101101
  4. RANIBIZUMAB [Suspect]
     Route: 050
     Dates: start: 20110222
  5. SODIUM HYALURONATE [Suspect]
     Indication: HYPERTENSION
     Route: 047
     Dates: start: 20100901
  6. LEUPROLIDE ACETATE [Concomitant]
  7. AMLODIPINE BESYLATE [Suspect]
     Indication: HYPERTENSION
     Route: 048
  8. TAPROS [Concomitant]

REACTIONS (1)
  - CONJUNCTIVAL BLEB [None]
